FAERS Safety Report 16750418 (Version 1)
Quarter: 2019Q3

REPORT INFORMATION
  Report Type: Spontaneous
  Country: US (occurrence: US)
  Receive Date: 20190828
  Receipt Date: 20190828
  Transmission Date: 20191005
  Serious: No
  Sender: FDA-Public Use
  Company Number: US-PFIZER INC-2019365138

PATIENT
  Age: 77 Year

DRUGS (1)
  1. MERREM [Suspect]
     Active Substance: MEROPENEM
     Dosage: UNK

REACTIONS (3)
  - Injection site erythema [Unknown]
  - Injection site extravasation [Unknown]
  - Injection site swelling [Unknown]

NARRATIVE: CASE EVENT DATE: 20190823
